FAERS Safety Report 5046116-0 (Version None)
Quarter: 2006Q3

REPORT INFORMATION
  Report Type: 
  Country: None (occurrence: None)
  Receive Date: 20060710
  Receipt Date: 20060630
  Transmission Date: 20061208
  Serious: Yes (Hospitalization)
  Sender: FDA-Public Use
  Company Number: FR-JNJFOC-20060700057

PATIENT
  Age: 22 Year
  Sex: Female
  Weight: 71 kg

DRUGS (7)
  1. REMICADE [Suspect]
     Route: 042
  2. REMICADE [Suspect]
     Indication: CROHN'S DISEASE
     Route: 042
  3. DAFALGAN [Concomitant]
     Route: 065
  4. DEBRIDAT [Concomitant]
     Route: 065
  5. PRIMPERAN TAB [Concomitant]
     Route: 065
  6. RIVOTRIL [Concomitant]
     Route: 065
  7. IMUREL [Concomitant]
     Route: 065

REACTIONS (8)
  - BACK PAIN [None]
  - C-REACTIVE PROTEIN INCREASED [None]
  - ERYTHEMA [None]
  - HOT FLUSH [None]
  - INFLAMMATION [None]
  - INFUSION RELATED REACTION [None]
  - RADICULAR PAIN [None]
  - THROAT TIGHTNESS [None]
